FAERS Safety Report 25969194 (Version 1)
Quarter: 2025Q4

REPORT INFORMATION
  Report Type: Spontaneous
  Country: US (occurrence: US)
  Receive Date: 20251028
  Receipt Date: 20251028
  Transmission Date: 20260117
  Serious: No
  Sender: DAIICHI
  Company Number: US-DSJP-DS-2025-172240-US

PATIENT
  Sex: Female

DRUGS (1)
  1. ENHERTU [Suspect]
     Active Substance: FAM-TRASTUZUMAB DERUXTECAN-NXKI
     Indication: Salivary gland cancer
     Dosage: 100 MG
     Route: 065

REACTIONS (2)
  - Brain fog [Unknown]
  - Off label use [Unknown]
